FAERS Safety Report 5267167-7 (Version None)
Quarter: 2007Q1

REPORT INFORMATION
  Report Type: 
  Country: None (occurrence: None)
  Receive Date: 20070313
  Receipt Date: 20070306
  Transmission Date: 20070707
  Serious: Yes (Other)
  Sender: FDA-Public Use
  Company Number: 163-21880-07030340

PATIENT
  Age: 44 Year
  Sex: Male

DRUGS (1)
  1. REVLIMID [Suspect]
     Indication: THYROID CANCER
     Dosage: ORAL
     Route: 048
     Dates: start: 20060708, end: 20070201

REACTIONS (2)
  - IDIOPATHIC THROMBOCYTOPENIC PURPURA [None]
  - NEUTROPENIA [None]
